FAERS Safety Report 14974716 (Version 1)
Quarter: 2018Q2

REPORT INFORMATION
  Report Type: Spontaneous
  Country: US (occurrence: US)
  Receive Date: 20180517
  Receipt Date: 20180517
  Transmission Date: 20180711
  Serious: Yes (Other)
  Sender: FDA-Public Use
  Company Number: None

PATIENT
  Age: 58 Year
  Sex: Male
  Weight: 113 kg

DRUGS (16)
  1. LEVOFLOXACIN. [Concomitant]
     Active Substance: LEVOFLOXACIN
     Dates: start: 20180408, end: 20180418
  2. ACYCLOVIR. [Concomitant]
     Active Substance: ACYCLOVIR
     Dates: start: 20180408
  3. ABSORBIC ACID [Concomitant]
     Dates: start: 20180405
  4. YESCARTA [Suspect]
     Active Substance: AXICABTAGENE CILOLEUCEL
     Indication: B-CELL LYMPHOMA
     Route: 041
     Dates: start: 20180409, end: 20180409
  5. LORAZEPAM. [Concomitant]
     Active Substance: LORAZEPAM
  6. SULFAMETHOXAZOLE-TRIMETHOPRIM DS [Concomitant]
     Active Substance: SULFAMETHOXAZOLE\TRIMETHOPRIM
     Dates: start: 20180409
  7. ONDANSETRON [Concomitant]
     Active Substance: ONDANSETRON
  8. MELATONIN [Concomitant]
     Active Substance: MELATONIN
  9. ALLOPURINOL. [Concomitant]
     Active Substance: ALLOPURINOL
     Dates: start: 20180404, end: 20180409
  10. FLUDARABINE [Concomitant]
     Active Substance: FLUDARABINE PHOSPHATE
     Dates: start: 20180404, end: 20180406
  11. TEMAZEPAM. [Concomitant]
     Active Substance: TEMAZEPAM
  12. CYCLOPHOSPHAMIDE. [Concomitant]
     Active Substance: CYCLOPHOSPHAMIDE
     Dates: start: 20180404, end: 20180406
  13. FLUCONAZOLE. [Concomitant]
     Active Substance: FLUCONAZOLE
     Dates: start: 20180408, end: 20180504
  14. MAGNESIUM OXIDE. [Concomitant]
     Active Substance: MAGNESIUM OXIDE
     Dates: start: 20180413, end: 20180414
  15. DIPHENHYDRAMINE. [Concomitant]
     Active Substance: DIPHENHYDRAMINE
     Dates: start: 20180409, end: 20180409
  16. MUPIROCIN TOPICAL [Concomitant]
     Dates: start: 20180404, end: 20180419

REACTIONS (3)
  - Febrile neutropenia [None]
  - Cytokine release syndrome [None]
  - Blood creatinine increased [None]

NARRATIVE: CASE EVENT DATE: 20180411
